FAERS Safety Report 24549599 (Version 1)
Quarter: 2024Q4

REPORT INFORMATION
  Report Type: Spontaneous
  Country: US (occurrence: None)
  Receive Date: 20241024
  Receipt Date: 20241024
  Transmission Date: 20250115
  Serious: Yes (Other)
  Sender: Public
  Company Number: None

PATIENT
  Age: 32 Year
  Sex: Female
  Weight: 121.5 kg

DRUGS (22)
  1. LUPRON DEPOT [Suspect]
     Active Substance: LEUPROLIDE ACETATE
     Indication: Endometriosis
     Dates: start: 20241001, end: 20241001
  2. SPIRONOLACTONE [Concomitant]
     Active Substance: SPIRONOLACTONE
  3. PROPRANOLOL [Concomitant]
     Active Substance: PROPRANOLOL HYDROCHLORIDE
  4. ROPINIROLE [Concomitant]
     Active Substance: ROPINIROLE
  5. NORETHINDRONE [Concomitant]
     Active Substance: NORETHINDRONE
  6. CYMBALTA [Concomitant]
     Active Substance: DULOXETINE HYDROCHLORIDE
  7. TOPIRAMATE [Concomitant]
     Active Substance: TOPIRAMATE
  8. LORATADINE [Concomitant]
     Active Substance: LORATADINE
  9. FAMOTIDINE [Concomitant]
     Active Substance: FAMOTIDINE
  10. ATORVASTATIN [Concomitant]
     Active Substance: ATORVASTATIN
  11. VITAMIN E [Concomitant]
     Active Substance: .ALPHA.-TOCOPHEROL
  12. FISH OIL [Concomitant]
     Active Substance: FISH OIL
  13. COENZYME Q10 [Concomitant]
     Active Substance: DIETARY SUPPLEMENT\UBIDECARENONE
  14. Digestive enzyme formula [Concomitant]
  15. BERBERINE [Concomitant]
     Active Substance: BERBERINE
  16. VITAMIN D NOS [Concomitant]
     Active Substance: CHOLECALCIFEROL\ERGOCALCIFEROL
  17. VITAMIN C [Concomitant]
     Active Substance: ASCORBIC ACID
  18. VITAMIN B12 [Concomitant]
     Active Substance: CYANOCOBALAMIN
  19. COPPER [Concomitant]
     Active Substance: COPPER
  20. SODIUM [Concomitant]
     Active Substance: SODIUM
  21. MAGNESIUM [Concomitant]
     Active Substance: MAGNESIUM
  22. NAC [Concomitant]

REACTIONS (2)
  - Pain [None]
  - Muscle spasms [None]

NARRATIVE: CASE EVENT DATE: 20241009
